FAERS Safety Report 10921121 (Version 1)
Quarter: 2015Q1

REPORT INFORMATION
  Report Type: Spontaneous
  Country: ES (occurrence: None)
  Receive Date: 20150312
  Receipt Date: 20150312
  Transmission Date: 20150721
  Serious: Yes (Other)
  Sender: FDA-Public Use
  Company Number: 2277426

PATIENT
  Age: 50 Year
  Sex: Female

DRUGS (7)
  1. OXALIPLATIN. [Suspect]
     Active Substance: OXALIPLATIN
     Indication: RECTAL CANCER
     Dosage: 4 CYCLES, CYCLICAL
     Dates: start: 20101020
  2. CETUXIMAB [Suspect]
     Active Substance: CETUXIMAB
     Indication: RECTAL CANCER
     Dosage: 12 CYCLES, CYCLICAL
     Dates: start: 201105, end: 20111031
  3. IRINOTECAN HYDROCHLORIDE. [Suspect]
     Active Substance: IRINOTECAN HYDROCHLORIDE
     Indication: RECTAL CANCER
     Dosage: 12 CYCLES, CYCLICAL
     Dates: start: 201105, end: 20111031
  4. CAPECITABINE. [Suspect]
     Active Substance: CAPECITABINE
     Indication: RECTAL CANCER
     Dosage: 4 CYCLES, CYCLICAL
     Dates: start: 20101020
  5. FLUOROURACIL. [Suspect]
     Active Substance: FLUOROURACIL
     Indication: RECTAL CANCER
     Dosage: 12 CYCLES, CYCLICAL
     Dates: start: 201105, end: 20111031
  6. FOLINIC ACID [Suspect]
     Active Substance: LEUCOVORIN
     Indication: RECTAL CANCER
     Dosage: 12 CYCLES, CYCLICAL
     Dates: start: 201105, end: 20111031
  7. RALTITREXED DISODIUM [Suspect]
     Active Substance: RALTITREXED
     Indication: RECTAL CANCER
     Dosage: 2 CYCLES, CYCLICAL

REACTIONS (5)
  - Osteoporosis [None]
  - Thrombocytopenia [None]
  - Hydronephrosis [None]
  - Renal impairment [None]
  - Back pain [None]
